FAERS Safety Report 7386636-7 (Version None)
Quarter: 2011Q1

REPORT INFORMATION
  Report Type: 
  Country: None (occurrence: None)
  Receive Date: 20110331
  Receipt Date: 20110323
  Transmission Date: 20110831
  Serious: Yes (Death)
  Sender: FDA-Public Use
  Company Number: CA-ROCHE-767628

PATIENT
  Sex: Male
  Weight: 75.3 kg

DRUGS (4)
  1. TEGRETOL [Concomitant]
     Route: 065
  2. ZANTAC [Concomitant]
     Route: 065
  3. DEXAMETHASONE [Concomitant]
     Route: 065
  4. BEVACIZUMAB [Suspect]
     Indication: GLIOBLASTOMA
     Route: 042
     Dates: start: 20110210, end: 20110303

REACTIONS (1)
  - DEATH [None]
